FAERS Safety Report 20059335 (Version 1)
Quarter: 2021Q4

REPORT INFORMATION
  Report Type: Spontaneous
  Country: US (occurrence: None)
  Receive Date: 20211111
  Receipt Date: 20211111
  Transmission Date: 20220303
  Serious: No
  Sender: FDA-Public Use
  Company Number: 2021A802163

PATIENT
  Sex: Female
  Weight: 56.2 kg

DRUGS (1)
  1. SYMBICORT [Suspect]
     Active Substance: BUDESONIDE\FORMOTEROL FUMARATE DIHYDRATE
     Dosage: 160/4.5 MCG, TWO PUFFS BY MOUTH TWICE DAILY
     Route: 055
     Dates: start: 20211015

REACTIONS (3)
  - Chronic obstructive pulmonary disease [Unknown]
  - Intentional device misuse [Unknown]
  - Device difficult to use [Unknown]
